FAERS Safety Report 6349604-X (Version None)
Quarter: 2009Q3

REPORT INFORMATION
  Report Type: 
  Country: None (occurrence: None)
  Receive Date: 20090911
  Receipt Date: 20090908
  Transmission Date: 20100115
  Serious: Yes (Disabling)
  Sender: FDA-Public Use
  Company Number: NO-TEVA-208498ISR

PATIENT
  Sex: Male

DRUGS (5)
  1. AIROMIR AUTOHALER [Suspect]
     Indication: ASTHMA
     Dates: start: 20070501
  2. FLUTICASONE PROPIONATE W/SALMETEROL [Suspect]
     Indication: ASTHMA
     Dosage: 25/250
     Dates: start: 20070501
  3. BUDESONIDE W/FORMOTEROL FUMARATE [Suspect]
     Indication: ASTHMA
     Dosage: 160/4.5
     Dates: start: 20030101, end: 20070501
  4. THEOPHYLLINE [Suspect]
     Indication: ASTHMA
     Dates: start: 19990101
  5. SALBUTAMOL SULFATE [Suspect]
     Indication: ASTHMA
     Dates: start: 20030101, end: 20070501

REACTIONS (2)
  - BACK PAIN [None]
  - EPIDURAL LIPOMATOSIS [None]
